FAERS Safety Report 6480526-X (Version None)
Quarter: 2009Q4

REPORT INFORMATION
  Report Type: 
  Country: None (occurrence: None)
  Receive Date: 20091123
  Receipt Date: 20090803
  Transmission Date: 20100525
  Serious: No
  Sender: FDA-Public Use
  Company Number: 8049862

PATIENT
  Age: 37 Year
  Sex: Female
  Weight: 134.2 kg

DRUGS (6)
  1. CIMZIA [Suspect]
     Indication: COLITIS ULCERATIVE
     Dosage: 400 MG SC
     Route: 058
     Dates: start: 20090710
  2. PREVACID [Concomitant]
  3. IMURAN [Concomitant]
  4. LIALDA [Concomitant]
  5. ENTOCORT EC [Concomitant]
  6. LEXAPRO [Concomitant]

REACTIONS (2)
  - DISCOMFORT [None]
  - SWELLING [None]
